FAERS Safety Report 6267724-5 (Version None)
Quarter: 2009Q3

REPORT INFORMATION
  Report Type: 
  Country: None (occurrence: None)
  Receive Date: 20090714
  Receipt Date: 20090609
  Transmission Date: 20100115
  Serious: Yes (Hospitalization, Other)
  Sender: FDA-Public Use
  Company Number: PHHY2009GB23189

PATIENT
  Sex: Male

DRUGS (2)
  1. CLOZARIL [Suspect]
     Indication: SCHIZOPHRENIA
     Dosage: UNK
     Dates: start: 20090430, end: 20090609
  2. PREDNISOLONE [Concomitant]

REACTIONS (7)
  - COLD SWEAT [None]
  - DYSPNOEA [None]
  - EOSINOPHIL COUNT INCREASED [None]
  - INFECTION [None]
  - LETHARGY [None]
  - PALLOR [None]
  - RASH [None]
